FAERS Safety Report 8923875 (Version 1)
Quarter: 2012Q4

REPORT INFORMATION
  Report Type: 
  Country: JP (occurrence: JP)
  Receive Date: 20121126
  Receipt Date: 20121126
  Transmission Date: 20130627
  Serious: Yes (Hospitalization)
  Sender: FDA-Public Use
  Company Number: JP-009507513-2012SP035289

PATIENT
  Age: 53 Year
  Sex: Female
  Weight: 68 kg

DRUGS (3)
  1. PEG-INTRON [Suspect]
     Indication: HEPATITIS C
     Dosage: 80 mg, qd
     Route: 058
     Dates: start: 20101203, end: 20110513
  2. REBETOL [Suspect]
     Indication: HEPATITIS C
     Dosage: 800 mg, qd
     Route: 048
     Dates: start: 20100203, end: 20110513
  3. URSO [Concomitant]
     Indication: HEPATIC FUNCTION ABNORMAL
     Dosage: 300 mg, bid
     Route: 048
     Dates: start: 20100924

REACTIONS (1)
  - Hypothyroidism [Recovering/Resolving]
